FAERS Safety Report 7751436-2 (Version None)
Quarter: 2011Q3

REPORT INFORMATION
  Report Type: 
  Country: None (occurrence: None)
  Receive Date: 20110914
  Receipt Date: 20110831
  Transmission Date: 20111222
  Serious: Yes (Other)
  Sender: FDA-Public Use
  Company Number: PHHY2011DE78154

PATIENT
  Sex: Female

DRUGS (6)
  1. PYOLYSIN OINTMENT [Concomitant]
     Dosage: UNK UKN, UNK
  2. NITROGLYCERIN [Concomitant]
     Dosage: UNK UKN, UNK
  3. TRAMADOL HCL [Concomitant]
     Dosage: UNK UKN, UNK
     Route: 048
  4. PANTOPRAZOLE [Concomitant]
     Indication: ABDOMINAL PAIN UPPER
     Dosage: 1 DF, QD
     Route: 048
     Dates: start: 20041213
  5. MELPERONE [Concomitant]
     Route: 048
  6. RASILEZ [Suspect]
     Indication: HYPERTENSION
     Dosage: 1 DF, QD
     Route: 048
     Dates: start: 20081217

REACTIONS (5)
  - GLAUCOMA [None]
  - EYE DISORDER [None]
  - PRURITUS GENERALISED [None]
  - ACNE [None]
  - BLISTER [None]
